FAERS Safety Report 19370292 (Version 1)
Quarter: 2021Q2

REPORT INFORMATION
  Report Type: Report from Study
  Country: US (occurrence: US)
  Receive Date: 20210603
  Receipt Date: 20210603
  Transmission Date: 20210717
  Serious: Yes (Hospitalization)
  Sender: FDA-Public Use
  Company Number: US-GILEAD-2021-0534007

PATIENT
  Sex: Female

DRUGS (2)
  1. TOBRAMYCIN. [Concomitant]
     Active Substance: TOBRAMYCIN
     Dosage: TOBRAMYCIN SULF INHL 300MG/5ML AMP
  2. AZTREONAM LYSINE [Suspect]
     Active Substance: AZTREONAM LYSINE
     Indication: CYSTIC FIBROSIS
     Dosage: 75 MG, TID, WEEKS ON AND 2 WEEKS OFF
     Route: 055
     Dates: start: 201804

REACTIONS (3)
  - Rib fracture [Unknown]
  - Tibia fracture [Unknown]
  - Off label use [Not Recovered/Not Resolved]
